FAERS Safety Report 17831310 (Version 2)
Quarter: 2020Q2

REPORT INFORMATION
  Report Type: Spontaneous
  Country: US (occurrence: US)
  Receive Date: 20200527
  Receipt Date: 20200616
  Transmission Date: 20200714
  Serious: Yes (Other)
  Sender: FDA-Public Use
  Company Number: US-NAPPMUNDI-USA-2020-0151831

PATIENT
  Age: 9 Year
  Sex: Female

DRUGS (3)
  1. OXYCONTIN [Suspect]
     Active Substance: OXYCODONE HYDROCHLORIDE
     Indication: BONE MARROW TRANSPLANT
     Dosage: 1 MG, 1 TABLET 2-3 TIMES DAILY
     Route: 048
     Dates: start: 2006
  2. HEROIN [Suspect]
     Active Substance: DIAMORPHINE
     Indication: PRODUCT USED FOR UNKNOWN INDICATION
     Route: 065
  3. OXYCONTIN [Suspect]
     Active Substance: OXYCODONE HYDROCHLORIDE
     Indication: HEPATOMEGALY

REACTIONS (3)
  - Withdrawal syndrome [Recovered/Resolved]
  - Off label use [Recovered/Resolved]
  - Drug abuse [Recovered/Resolved]
